FAERS Safety Report 14987397 (Version 1)
Quarter: 2018Q2

REPORT INFORMATION
  Report Type: Report from Study
  Country: ES (occurrence: ES)
  Receive Date: 20180608
  Receipt Date: 20180608
  Transmission Date: 20180711
  Serious: Yes (Hospitalization)
  Sender: FDA-Public Use
  Company Number: ES-TEVA-2018-ES-902115

PATIENT
  Age: 75 Year
  Sex: Male

DRUGS (6)
  1. CARVEDILOL. [Suspect]
     Active Substance: CARVEDILOL
     Dosage: 1/2-0-1/2
     Route: 048
     Dates: start: 20161220
  2. SERTRALINA (2537A) [Suspect]
     Active Substance: SERTRALINE HYDROCHLORIDE
     Route: 048
     Dates: start: 20161220
  3. ADIRO 300 [Concomitant]
     Active Substance: ASPIRIN
     Route: 048
     Dates: start: 20161220
  4. FITOMENADIONA (1553A) [Concomitant]
     Active Substance: PHYTONADIONE
     Dosage: 1 AMPULES EVERY 2 DAYS
     Route: 030
     Dates: start: 20170405
  5. INDACATEROL (8366A) [Suspect]
     Active Substance: INDACATEROL
     Dates: start: 20161220, end: 20170617
  6. ROSUVASTATINA 10 [Concomitant]
     Active Substance: ROSUVASTATIN
     Route: 048
     Dates: start: 20161220

REACTIONS (2)
  - Acute kidney injury [Recovered/Resolved]
  - Condition aggravated [Recovered/Resolved]

NARRATIVE: CASE EVENT DATE: 20170617
